FAERS Safety Report 15256177 (Version 1)
Quarter: 2018Q3

REPORT INFORMATION
  Report Type: Spontaneous
  Country: US (occurrence: US)
  Receive Date: 20180718
  Receipt Date: 20180718
  Transmission Date: 20181010
  Serious: Yes (Hospitalization)
  Sender: FDA-Public Use
  Company Number: None

PATIENT
  Age: 41 Year
  Sex: Male
  Weight: 124.2 kg

DRUGS (4)
  1. TRULICITY [Suspect]
     Active Substance: DULAGLUTIDE
     Indication: TYPE 2 DIABETES MELLITUS
     Route: 058
     Dates: start: 20180709, end: 20180716
  2. LISINOPRIL. [Concomitant]
     Active Substance: LISINOPRIL
     Dates: start: 20140804
  3. ALLOPURINOL. [Concomitant]
     Active Substance: ALLOPURINOL
     Dates: start: 20170601
  4. GLIPIZIDE/METFORMIN [Concomitant]
     Active Substance: GLIPIZIDE\METFORMIN HYDROCHLORIDE
     Dates: start: 20150421

REACTIONS (7)
  - Therapy change [None]
  - Vomiting [None]
  - Syncope [None]
  - Product quality issue [None]
  - Drug dose omission [None]
  - Nausea [None]
  - Diarrhoea [None]

NARRATIVE: CASE EVENT DATE: 20180717
